FAERS Safety Report 10045225 (Version 1)
Quarter: 2014Q1

REPORT INFORMATION
  Report Type: Spontaneous
  Country: US (occurrence: US)
  Receive Date: 20140328
  Receipt Date: 20140328
  Transmission Date: 20141002
  Serious: No
  Sender: FDA-Public Use
  Company Number: US-GILEAD-2014-0097754

PATIENT
  Age: 71 Year
  Sex: Male

DRUGS (3)
  1. RANEXA [Suspect]
     Indication: ANGINA PECTORIS
     Dosage: 500 MG, BID
     Dates: start: 20140311
  2. MYRBETRIQ [Concomitant]
     Indication: URINARY INCONTINENCE
  3. MYRBETRIQ [Concomitant]
     Indication: POLLAKIURIA

REACTIONS (2)
  - Urinary incontinence [Not Recovered/Not Resolved]
  - Pollakiuria [Not Recovered/Not Resolved]
